FAERS Safety Report 5661019-6 (Version None)
Quarter: 2008Q1

REPORT INFORMATION
  Report Type: 
  Country: None (occurrence: None)
  Receive Date: 20080311
  Receipt Date: 20070417
  Transmission Date: 20080703
  Serious: Yes (Hospitalization)
  Sender: FDA-Public Use
  Company Number: US-ELI_LILLY_AND_COMPANY-US200703004537

PATIENT
  Sex: Male
  Weight: 22.7 kg

DRUGS (2)
  1. SOMATROPIN [Suspect]
     Indication: GROWTH HORMONE DEFICIENCY
     Dosage: 1.4 MG, DAILY (1/D)
     Route: 058
     Dates: start: 20020904, end: 20070117
  2. LORATADINE [Concomitant]
     Indication: HYPERSENSITIVITY
     Dates: start: 20050901

REACTIONS (1)
  - PHAEOCHROMOCYTOMA [None]
